FAERS Safety Report 9018566 (Version 1)
Quarter: 2013Q1

REPORT INFORMATION
  Report Type: Spontaneous
  Country: US (occurrence: None)
  Receive Date: 20130111
  Receipt Date: 20130111
  Transmission Date: 20140127
  Serious: No
  Sender: FDA-Public Use
  Company Number: None

PATIENT
  Age: 42 Year
  Sex: Female

DRUGS (4)
  1. GEMFIBROZIL [Suspect]
     Indication: HYPERLIPIDAEMIA
     Dates: start: 20110409, end: 20110526
  2. IMURAN [Suspect]
     Indication: COLITIS
     Dates: start: 20071214, end: 20100913
  3. BUPROPRION [Concomitant]
  4. BUPROPRION [Concomitant]

REACTIONS (15)
  - Hyperlipidaemia [None]
  - Depression [None]
  - Fatigue [None]
  - Faeces discoloured [None]
  - Jaundice [None]
  - Cholestasis [None]
  - Blood bilirubin increased [None]
  - Alanine aminotransferase increased [None]
  - Blood alkaline phosphatase increased [None]
  - Pruritus [None]
  - Excoriation [None]
  - Insomnia [None]
  - Hepatocellular injury [None]
  - Drug interaction [None]
  - Drug-induced liver injury [None]
